FAERS Safety Report 20966861 (Version 9)
Quarter: 2023Q4

REPORT INFORMATION
  Report Type: Report from Study
  Country: SE (occurrence: SE)
  Receive Date: 20220616
  Receipt Date: 20231129
  Transmission Date: 20240109
  Serious: Yes (Other)
  Sender: FDA-Public Use
  Company Number: SE-JNJFOC-20220507627

PATIENT
  Age: 31 Year
  Sex: Female
  Weight: 57.7 kg

DRUGS (29)
  1. VENLAFAXINE [Suspect]
     Active Substance: VENLAFAXINE HYDROCHLORIDE
     Indication: Product used for unknown indication
     Dosage: UNK
     Route: 065
  2. SPRAVATO [Suspect]
     Active Substance: ESKETAMINE
     Indication: Depression
     Dosage: 56 MILLIGRAM,(2 DEVICES), 3 TOTAL DOSE
     Route: 065
     Dates: start: 20220419
  3. SPRAVATO [Suspect]
     Active Substance: ESKETAMINE
     Dosage: 56 MILLIGRAM, (2 DEVICES), 3 TOTAL DOSES
     Route: 045
     Dates: start: 20220419
  4. SPRAVATO [Suspect]
     Active Substance: ESKETAMINE
     Dosage: 56 MILLIGRAM,56 MG (2 DEVICES)
     Route: 065
     Dates: start: 20220421
  5. SPRAVATO [Suspect]
     Active Substance: ESKETAMINE
     Dosage: 56 MILLIGRAM,56 MG (2 DEVICES)
     Route: 065
     Dates: start: 20220426
  6. SPRAVATO [Suspect]
     Active Substance: ESKETAMINE
     Dosage: 56 MILLIGRAM,56 MG (2 DEVICES)
     Route: 065
     Dates: start: 20220428
  7. SPRAVATO [Suspect]
     Active Substance: ESKETAMINE
     Dosage: 84 MILLIGRAM, (3 DEVICES), 6 TOTAL DOSES
     Route: 045
     Dates: start: 20220428, end: 20220518
  8. SPRAVATO [Suspect]
     Active Substance: ESKETAMINE
     Dosage: 84 MG (3 DEVICES), 6 TOTAL DOSES
     Route: 045
     Dates: start: 20220428
  9. SPRAVATO [Suspect]
     Active Substance: ESKETAMINE
     Dosage: 84 MG (3 DEVICES)
     Route: 065
     Dates: start: 20220503
  10. SPRAVATO [Suspect]
     Active Substance: ESKETAMINE
     Dosage: THERAPY DATES 10-MAY-2022,84 MG, 3 DEVICES
     Route: 065
     Dates: start: 20220505
  11. SPRAVATO [Suspect]
     Active Substance: ESKETAMINE
     Dosage: RECENT THERAPY DATES 10-MAY-2022
     Route: 065
     Dates: start: 20220510
  12. SPRAVATO [Suspect]
     Active Substance: ESKETAMINE
     Dosage: RECENT DATE10-MAY-2022, 84 MG, 3 DEVICE
     Route: 065
     Dates: start: 20220512
  13. SPRAVATO [Suspect]
     Active Substance: ESKETAMINE
     Dosage: 56 MILLIGRAM, (2 DEVICES), 1 TOTAL DOSES
     Route: 045
     Dates: start: 20220512
  14. SPRAVATO [Suspect]
     Active Substance: ESKETAMINE
     Dosage: 84 MILLIGRAM, (3 DEVICES), 1 TOTAL DOSES
     Route: 045
     Dates: start: 20220518
  15. SPRAVATO [Suspect]
     Active Substance: ESKETAMINE
     Dosage: 56 MG, (2 DEVICES), 1 TOTAL DOSES
     Route: 045
     Dates: start: 20220524, end: 20220524
  16. SPRAVATO [Suspect]
     Active Substance: ESKETAMINE
     Dosage: 84 MG (3 DEVICES), 15 TOTAL DOSES
     Route: 045
     Dates: start: 20220527, end: 20220809
  17. SPRAVATO [Suspect]
     Active Substance: ESKETAMINE
     Dosage: 84 MILLIGRAM,(3 DEVICES), 6 TOTAL DOSES
     Route: 045
     Dates: start: 20220527
  18. SPRAVATO [Suspect]
     Active Substance: ESKETAMINE
     Dosage: 84 MG (3 DEVICES), 10 TOTAL DOSES
     Route: 045
     Dates: start: 20220527
  19. SPRAVATO [Suspect]
     Active Substance: ESKETAMINE
     Dosage: 84 MG (3 DEVICES), 35 TOTAL DOSES
     Route: 045
     Dates: start: 20220527, end: 20220927
  20. SPRAVATO [Suspect]
     Active Substance: ESKETAMINE
     Dosage: 84 MG (3 DEVICES)
     Route: 045
     Dates: start: 20220830, end: 20220830
  21. SPRAVATO [Suspect]
     Active Substance: ESKETAMINE
     Dosage: 84 MG (3 DEVICES)
     Route: 045
     Dates: start: 20220901, end: 20220901
  22. SPRAVATO [Suspect]
     Active Substance: ESKETAMINE
     Dosage: 84 MG (3 DEVICES)
     Route: 045
     Dates: start: 20220908, end: 20220908
  23. SPRAVATO [Suspect]
     Active Substance: ESKETAMINE
     Dosage: 84 MG (3 DEVICES)
     Route: 045
     Dates: start: 20220913, end: 20220913
  24. SPRAVATO [Suspect]
     Active Substance: ESKETAMINE
     Dosage: 84 MG (3 DEVICES)
     Route: 045
     Dates: start: 20220915, end: 20220915
  25. SPRAVATO [Suspect]
     Active Substance: ESKETAMINE
     Dosage: 84 MG (3 DEVICES)
     Route: 045
     Dates: start: 20220920, end: 20220920
  26. SPRAVATO [Suspect]
     Active Substance: ESKETAMINE
     Dosage: 84 MG (3 DEVICES)
     Route: 045
     Dates: start: 20220922, end: 20220922
  27. SPRAVATO [Suspect]
     Active Substance: ESKETAMINE
     Dosage: 84 MG (3 DEVICES)
     Route: 045
     Dates: start: 20220927, end: 20220927
  28. LITHIUM SULFATE [Concomitant]
     Active Substance: LITHIUM SULFATE
     Dosage: 84 MILLIGRAM, QD
     Route: 065
  29. LITHIUM SULFATE [Concomitant]
     Active Substance: LITHIUM SULFATE
     Dosage: 42 MILLIGRAM, QD
     Route: 065

REACTIONS (17)
  - Suicidal ideation [Recovered/Resolved]
  - Hypothyroidism [Recovering/Resolving]
  - Urine output increased [Recovering/Resolving]
  - Euphoric mood [Recovered/Resolved]
  - Feeling drunk [Recovered/Resolved]
  - Derealisation [Recovered/Resolved]
  - Depression [Recovered/Resolved]
  - Epistaxis [Recovered/Resolved]
  - Dizziness [Recovered/Resolved]
  - Fatigue [Recovered/Resolved]
  - Dyskinesia [Recovered/Resolved]
  - Night sweats [Not Recovered/Not Resolved]
  - Anxiety [Recovered/Resolved]
  - Nausea [Recovered/Resolved]
  - Decreased appetite [Not Recovered/Not Resolved]
  - Hypertension [Recovered/Resolved]
  - Drug ineffective [Unknown]

NARRATIVE: CASE EVENT DATE: 20220419
